FAERS Safety Report 7869346-9 (Version None)
Quarter: 2011Q4

REPORT INFORMATION
  Report Type: 
  Country: None (occurrence: None)
  Receive Date: 20111028
  Receipt Date: 20110102
  Transmission Date: 20120403
  Serious: No
  Sender: FDA-Public Use
  Company Number: US-AMGEN-USASP2010003874

PATIENT
  Age: 43 Year
  Sex: Female
  Weight: 92.063 kg

DRUGS (4)
  1. CENTRUM                            /00554501/ [Concomitant]
     Dosage: UNK UNK, QD
     Route: 048
  2. LYSINE HYDROCHLORIDE [Concomitant]
     Dosage: 1000 MG, QD
     Route: 048
  3. OSTEO BI-FLEX [Concomitant]
     Dosage: UNK UNK, BID
     Route: 048
  4. ENBREL [Suspect]
     Indication: PSORIATIC ARTHROPATHY
     Dosage: 50 MG, QWK
     Route: 058
     Dates: start: 20100922

REACTIONS (4)
  - NAUSEA [None]
  - VITAMIN D DEFICIENCY [None]
  - ALCOHOL INTOLERANCE [None]
  - PSORIATIC ARTHROPATHY [None]
